FAERS Safety Report 5463016-2 (Version None)
Quarter: 2007Q3

REPORT INFORMATION
  Report Type: 
  Country: None (occurrence: None)
  Receive Date: 20070920
  Receipt Date: 20070910
  Transmission Date: 20080115
  Serious: Yes (Other)
  Sender: FDA-Public Use
  Company Number: DE-AMGEN-UK242460

PATIENT
  Sex: Female
  Weight: 89 kg

DRUGS (18)
  1. ARANESP [Suspect]
     Indication: DIALYSIS
     Route: 058
  2. IRBESARTAN [Concomitant]
  3. NISOLDIPINE [Concomitant]
  4. ALFACALCIDOL [Concomitant]
  5. CALCIUM ACETATE [Concomitant]
  6. CAPTOPRIL [Concomitant]
  7. METOPROLOL SUCCINATE [Concomitant]
  8. MOXONIDINE [Concomitant]
  9. ALLOPURINOL SODIUM [Concomitant]
  10. XIPAMIDE [Concomitant]
  11. FERROUS GLYCINE SULFATE [Concomitant]
  12. SODIUM BICARBONATE [Concomitant]
  13. FUROSEMIDE [Concomitant]
  14. EBRANTIL [Concomitant]
  15. FOSRENOL [Concomitant]
  16. NEORECORMON [Concomitant]
  17. DEKRISTOL [Concomitant]
     Route: 048
  18. POLY (STYROL-CO-DIVINYLBENZOL) SULFON ACID/SODIUM SALT [Concomitant]

REACTIONS (4)
  - DYSPNOEA [None]
  - EYELID OEDEMA [None]
  - GENERALISED OEDEMA [None]
  - HYPERSENSITIVITY [None]
